FAERS Safety Report 16419050 (Version 1)
Quarter: 2019Q2

REPORT INFORMATION
  Report Type: Spontaneous
  Country: US (occurrence: US)
  Receive Date: 20190612
  Receipt Date: 20190612
  Transmission Date: 20190711
  Serious: Yes (Other)
  Sender: FDA-Public Use
  Company Number: US-ASTRAZENECA-2019SE84493

PATIENT
  Age: 735 Month
  Sex: Female

DRUGS (1)
  1. IMFINZI [Suspect]
     Active Substance: DURVALUMAB
     Indication: LUNG CARCINOMA CELL TYPE UNSPECIFIED STAGE III
     Route: 042
     Dates: end: 201810

REACTIONS (4)
  - Pulmonary mass [Unknown]
  - Pneumonia [Unknown]
  - Medication error [Unknown]
  - Fatigue [Unknown]

NARRATIVE: CASE EVENT DATE: 201810
